FAERS Safety Report 10543933 (Version 1)
Quarter: 2014Q4

REPORT INFORMATION
  Report Type: Spontaneous
  Country: US (occurrence: None)
  Receive Date: 20141010
  Receipt Date: 20141010
  Transmission Date: 20150529
  Serious: Yes (Hospitalization)
  Sender: FDA-Public Use
  Company Number: 163-POMAL-14072508

PATIENT
  Age: 77 Year
  Sex: Male
  Weight: 117.94 kg

DRUGS (8)
  1. ACYCLOVIR (ACICLOVIR) (ACICLOVIR) [Concomitant]
     Active Substance: ACYCLOVIR
  2. TURMERIC [Concomitant]
     Active Substance: TURMERIC
  3. VITAMIN D (ERGOCALCIFEROL) [Concomitant]
     Active Substance: ERGOCALCIFEROL
  4. POMALYST [Suspect]
     Active Substance: POMALIDOMIDE
     Indication: PLASMA CELL MYELOMA
     Dosage: 2MG, 21 IN 21D, PO
     Route: 048
     Dates: start: 20140610
  5. DEXAMETHASONE. [Concomitant]
     Active Substance: DEXAMETHASONE
  6. METFORMIN HCL (METFORMIN HYDROCHLORIDE) [Concomitant]
  7. OCUVITE [Concomitant]
     Active Substance: VITAMINS
  8. OIL OF OREGANO (ORIGANUM MINUTIFLORUM OIL) [Concomitant]

REACTIONS (6)
  - Pyrexia [None]
  - Dyspnoea [None]
  - No therapeutic response [None]
  - Rash pruritic [None]
  - Chest pain [None]
  - Back pain [None]

NARRATIVE: CASE EVENT DATE: 2014
